FAERS Safety Report 25787291 (Version 1)
Quarter: 2025Q3

REPORT INFORMATION
  Report Type: Report from Study
  Country: US (occurrence: US)
  Receive Date: 20250910
  Receipt Date: 20250910
  Transmission Date: 20251020
  Serious: Yes (Hospitalization, Congenital Anomaly)
  Sender: ALEXION PHARMACEUTICALS
  Company Number: US-ASTRAZENECA-202509GLO001802US

PATIENT
  Sex: Female
  Weight: 70 kg

DRUGS (27)
  1. STRENSIQ [Suspect]
     Active Substance: ASFOTASE ALFA
     Indication: Hypophosphatasia
     Dosage: 80 MILLIGRAM, TIW
     Dates: start: 202106, end: 20230511
  2. STRENSIQ [Suspect]
     Active Substance: ASFOTASE ALFA
  3. ALBUTEROL [Concomitant]
     Active Substance: ALBUTEROL
     Indication: Asthma
  4. CETIRIZINE [Concomitant]
     Active Substance: CETIRIZINE HYDROCHLORIDE
     Indication: Hypersensitivity
  5. ONDANSETRON [Concomitant]
     Active Substance: ONDANSETRON
     Indication: Nausea
  6. TACLONEX [Concomitant]
     Active Substance: BETAMETHASONE DIPROPIONATE\CALCIPOTRIENE\CALCIPOTRIENE HYDRATE
     Indication: Psoriasis
  7. CLOBETASOL [Concomitant]
     Active Substance: CLOBETASOL
     Indication: Psoriasis
  8. CLOBETASOL [Concomitant]
     Active Substance: CLOBETASOL
  9. FLUOCINONIDE [Concomitant]
     Active Substance: FLUOCINONIDE
     Indication: Psoriasis
  10. HYDROXYZINE HYDROCHLORIDE [Concomitant]
     Active Substance: HYDROXYZINE HYDROCHLORIDE
     Indication: Anxiety
  11. HYDROXYZINE HYDROCHLORIDE [Concomitant]
     Active Substance: HYDROXYZINE HYDROCHLORIDE
  12. LORAZEPAM [Concomitant]
     Active Substance: LORAZEPAM
     Indication: Anxiety
  13. MELOXICAM [Concomitant]
     Active Substance: MELOXICAM
     Indication: Arthritis
  14. OLMESARTAN [Concomitant]
     Active Substance: OLMESARTAN
     Indication: Hypertension
  15. HYOSCYAMINE [Concomitant]
     Active Substance: HYOSCYAMINE
  16. BAYER ASPIRIN [Concomitant]
     Active Substance: ASPIRIN
  17. PETROLATUM [Concomitant]
     Active Substance: PETROLATUM
  18. CHOLECALCIFEROL [Concomitant]
     Active Substance: CHOLECALCIFEROL
     Indication: Vitamin supplementation
  19. PROMETHAZINE [Concomitant]
     Active Substance: PROMETHAZINE HYDROCHLORIDE
     Indication: Nausea
  20. TACROLIMUS [Concomitant]
     Active Substance: TACROLIMUS
  21. PREDNISONE [Concomitant]
     Active Substance: PREDNISONE
     Indication: Arthritis
  22. MYCOPHENOLATE MOFETIL [Concomitant]
     Active Substance: MYCOPHENOLATE MOFETIL
  23. HYDROXYCHLOROQUINE [Concomitant]
     Active Substance: HYDROXYCHLOROQUINE
  24. TOPIRAMATE [Concomitant]
     Active Substance: TOPIRAMATE
     Indication: Migraine
  25. DICLOFENAC [Concomitant]
     Active Substance: DICLOFENAC
     Indication: Arthralgia
  26. FAMOTIDINE [Concomitant]
     Active Substance: FAMOTIDINE
     Indication: Gastrooesophageal reflux disease
  27. TRAMADOL [Concomitant]
     Active Substance: TRAMADOL
     Indication: Pain

REACTIONS (1)
  - Cerebrovascular disorder [Recovered/Resolved]

NARRATIVE: CASE EVENT DATE: 20250626
